FAERS Safety Report 6852161-2 (Version None)
Quarter: 2010Q3

REPORT INFORMATION
  Report Type: 
  Country: None (occurrence: None)
  Receive Date: 20100717
  Receipt Date: 20071106
  Transmission Date: 20110219
  Serious: No
  Sender: FDA-Public Use
  Company Number: US-PFIZER INC-2007094995

PATIENT
  Sex: Female
  Weight: 75 kg

DRUGS (5)
  1. CHANTIX [Suspect]
     Indication: SMOKING CESSATION THERAPY
     Dates: start: 20071022
  2. NEXIUM [Concomitant]
  3. EFFEXOR [Concomitant]
  4. REGLAN [Concomitant]
  5. PREMARIN [Concomitant]

REACTIONS (2)
  - ANXIETY [None]
  - INSOMNIA [None]
